FAERS Safety Report 11879032 (Version 1)
Quarter: 2015Q4

REPORT INFORMATION
  Report Type: Spontaneous
  Country: RU (occurrence: RU)
  Receive Date: 20151230
  Receipt Date: 20151230
  Transmission Date: 20160305
  Serious: Yes (Other)
  Sender: FDA-Public Use
  Company Number: RU-BRISTOL-MYERS SQUIBB COMPANY-BMS-2015-091708

PATIENT
  Age: 60 Year
  Sex: Male

DRUGS (2)
  1. CETUXIMAB [Suspect]
     Active Substance: CETUXIMAB
     Dosage: 250 MG/M2, QWK
     Route: 042
     Dates: start: 2014
  2. CETUXIMAB [Suspect]
     Active Substance: CETUXIMAB
     Indication: OROPHARYNGEAL CANCER
     Dosage: 400 MG/M2, QWK
     Route: 042
     Dates: start: 2014

REACTIONS (3)
  - Ischaemic stroke [Unknown]
  - Mucosal inflammation [Unknown]
  - Dermatitis [Unknown]
